FAERS Safety Report 7276638-3 (Version None)
Quarter: 2011Q1

REPORT INFORMATION
  Report Type: 
  Country: None (occurrence: None)
  Receive Date: 20110204
  Receipt Date: 20110124
  Transmission Date: 20110831
  Serious: Yes (Hospitalization, Other)
  Sender: FDA-Public Use
  Company Number: US-BAYER-US-2006-028789

PATIENT
  Sex: Female
  Weight: 53.515 kg

DRUGS (8)
  1. BETASERON [Suspect]
     Indication: SECONDARY PROGRESSIVE MULTIPLE SCLEROSIS
     Route: 058
     Dates: start: 19950515
  2. LEVOTHYROXINE [Concomitant]
     Indication: HYPOTHYROIDISM
     Dosage: .1 MG, 1X/DAY
     Route: 048
     Dates: start: 19910501
  3. ALBUTEROL [Concomitant]
     Indication: ASTHMA
     Dosage: INHALED
     Route: 055
  4. BETASERON [Suspect]
     Indication: RELAPSING-REMITTING MULTIPLE SCLEROSIS
     Dosage: BETAJECT
     Route: 058
     Dates: start: 19950506
  5. BETASERON [Suspect]
     Dosage: BETAJECT
     Route: 058
  6. CALCIUM CARBONATE [Concomitant]
     Indication: NAUSEA
     Dosage: 1 TAB(S), 1X/DAY [DAILY DOSE: 1 TAB(S)]
     Route: 048
  7. OMEPRAZOLE [Concomitant]
     Indication: ULCER
     Dosage: 1 TAB(S), 1X/DAY [DAILY DOSE: 1 TAB(S)]
     Route: 048
  8. PARACETAMOL [Concomitant]
     Indication: RELAPSING-REMITTING MULTIPLE SCLEROSIS
     Dosage: UNK, AS REQ'D
     Route: 048

REACTIONS (14)
  - BLOOD POTASSIUM DECREASED [None]
  - RESPIRATORY TRACT INFECTION [None]
  - THROMBOSIS [None]
  - FATIGUE [None]
  - GASTRIC ULCER [None]
  - PERNICIOUS ANAEMIA [None]
  - INJECTION SITE PAIN [None]
  - OEDEMA PERIPHERAL [None]
  - RETINAL DETACHMENT [None]
  - ANAEMIA [None]
  - INTRAOCULAR PRESSURE INCREASED [None]
  - MULTIPLE SYSTEM ATROPHY [None]
  - INFLUENZA LIKE ILLNESS [None]
  - INJECTION SITE CELLULITIS [None]
